FAERS Safety Report 11487498 (Version 1)
Quarter: 2015Q3

REPORT INFORMATION
  Report Type: Spontaneous
  Country: US (occurrence: US)
  Receive Date: 20150910
  Receipt Date: 20150910
  Transmission Date: 20151125
  Serious: No
  Sender: FDA-Public Use
  Company Number: US-ROCHE-1412309

PATIENT
  Sex: Male

DRUGS (6)
  1. SOFOSBUVIR [Suspect]
     Active Substance: SOFOSBUVIR
     Indication: CHRONIC HEPATITIS C
     Route: 065
     Dates: start: 20140214
  2. SOFOSBUVIR [Suspect]
     Active Substance: SOFOSBUVIR
     Indication: ILL-DEFINED DISORDER
  3. PEGASYS [Suspect]
     Active Substance: PEGINTERFERON ALFA-2A
     Indication: ILL-DEFINED DISORDER
  4. RIBAVIRIN. [Suspect]
     Active Substance: RIBAVIRIN
     Indication: ILL-DEFINED DISORDER
  5. RIBAVIRIN. [Suspect]
     Active Substance: RIBAVIRIN
     Indication: CHRONIC HEPATITIS C
     Dosage: DIVIDED DOSES
     Route: 065
     Dates: start: 20140214
  6. PEGASYS [Suspect]
     Active Substance: PEGINTERFERON ALFA-2A
     Indication: CHRONIC HEPATITIS C
     Route: 065
     Dates: start: 20140214, end: 20140530

REACTIONS (3)
  - Malaise [Unknown]
  - Feeling hot [Unknown]
  - Cough [Unknown]
